FAERS Safety Report 5615463-3 (Version None)
Quarter: 2008Q1

REPORT INFORMATION
  Report Type: 
  Country: None (occurrence: None)
  Receive Date: 20080204
  Receipt Date: 20080204
  Transmission Date: 20080703
  Serious: No
  Sender: FDA-Public Use
  Company Number: None

PATIENT
  Sex: Male

DRUGS (1)
  1. TAMOXIFEN CITRATE [Suspect]
     Indication: PROSTATE CANCER
     Dosage: TAKE ONE TABLET BY MOUTH ONCE DAILY
     Dates: start: 20071205

REACTIONS (1)
  - PHARMACEUTICAL PRODUCT COMPLAINT [None]
